FAERS Safety Report 15635818 (Version 2)
Quarter: 2019Q1

REPORT INFORMATION
  Report Type: Spontaneous
  Country: PT (occurrence: PT)
  Receive Date: 20181120
  Receipt Date: 20190129
  Transmission Date: 20190417
  Serious: Yes (Death, Hospitalization, Other)
  Sender: FDA-Public Use
  Company Number: PT-AUROBINDO-AUR-APL-2018-055904

PATIENT
  Age: 58 Year
  Sex: Male

DRUGS (2)
  1. AMOXICILLIN+CLAVULANIC ACID [Suspect]
     Active Substance: AMOXICILLIN\CLAVULANIC ACID
     Indication: TONSILLITIS
     Dosage: UNK
     Route: 048
  2. PREDNISOLONE. [Suspect]
     Active Substance: PREDNISOLONE
     Indication: PRODUCT USED FOR UNKNOWN INDICATION
     Dosage: 40 MILLIGRAM, ONCE A DAY
     Route: 065

REACTIONS (10)
  - Hyperhidrosis [Fatal]
  - Pruritus [Fatal]
  - Cholestasis [Fatal]
  - Colitis [Fatal]
  - Jaundice [Fatal]
  - Drug-induced liver injury [Recovering/Resolving]
  - Hepatic lesion [Unknown]
  - Cholestatic liver injury [Unknown]
  - Rash pruritic [Fatal]
  - Asthenia [Fatal]
